FAERS Safety Report 26012726 (Version 1)
Quarter: 2025Q4

REPORT INFORMATION
  Report Type: Spontaneous
  Country: US (occurrence: US)
  Receive Date: 20251107
  Receipt Date: 20251107
  Transmission Date: 20260118
  Serious: No
  Sender: XERIS PHARMACEUTICALS
  Company Number: US-BRIAN CONNER SVP QUALITY AND CHIEF COMPLIANCE OFFICER-2024XER00561

PATIENT
  Sex: Female
  Weight: 106 kg

DRUGS (3)
  1. GVOKE [Suspect]
     Active Substance: GLUCAGON
     Indication: Hypoglycaemia
     Dosage: UNK
  2. GVOKE [Suspect]
     Active Substance: GLUCAGON
     Indication: Type 2 diabetes mellitus
  3. HUMALOG [Concomitant]
     Active Substance: INSULIN LISPRO

REACTIONS (2)
  - Hypoglycaemia [Unknown]
  - Drug ineffective [Unknown]
